FAERS Safety Report 6263308-3 (Version None)
Quarter: 2009Q3

REPORT INFORMATION
  Report Type: 
  Country: None (occurrence: None)
  Receive Date: 20090710
  Receipt Date: 20090505
  Transmission Date: 20100115
  Serious: No
  Sender: FDA-Public Use
  Company Number: A0780305A

PATIENT
  Sex: Male

DRUGS (3)
  1. REQUIP XL [Suspect]
     Indication: PARKINSON'S DISEASE
     Dosage: 4MG UNKNOWN
     Route: 048
     Dates: start: 20090101, end: 20090401
  2. SINEMET [Concomitant]
  3. COGENTIN [Concomitant]

REACTIONS (1)
  - HICCUPS [None]
